FAERS Safety Report 7019592-1 (Version None)
Quarter: 2010Q3

REPORT INFORMATION
  Report Type: 
  Country: None (occurrence: None)
  Receive Date: 20100928
  Receipt Date: 20100928
  Transmission Date: 20110219
  Serious: No
  Sender: FDA-Public Use
  Company Number: None

PATIENT
  Age: 62 Year
  Sex: Female
  Weight: 83.0083 kg

DRUGS (1)
  1. COMPAZINE [Suspect]
     Indication: MIGRAINE
     Dosage: IV DOSE UNKNOWN IV
     Route: 042
     Dates: start: 20100821, end: 20100821

REACTIONS (4)
  - DRUG HYPERSENSITIVITY [None]
  - MEIGE'S SYNDROME [None]
  - NO THERAPEUTIC RESPONSE [None]
  - SPEECH DISORDER [None]
